FAERS Safety Report 5990721-1 (Version None)
Quarter: 2008Q4

REPORT INFORMATION
  Report Type: 
  Country: None (occurrence: None)
  Receive Date: 20081209
  Receipt Date: 20081124
  Transmission Date: 20090506
  Serious: Yes (Hospitalization)
  Sender: FDA-Public Use
  Company Number: KV200800502

PATIENT
  Age: 77 Year
  Sex: Female
  Weight: 102.9 kg

DRUGS (5)
  1. PROPAFENONE HCL [Suspect]
     Indication: TACHYCARDIA
     Dosage: 150 MG, TID, ORAL
     Route: 048
  2. GABAPENTIN [Concomitant]
  3. ACETAMINOPHEN [Concomitant]
  4. ARIMIDEX [Concomitant]
  5. AROMASIN [Concomitant]

REACTIONS (3)
  - HEART RATE IRREGULAR [None]
  - PALPITATIONS [None]
  - PRODUCT QUALITY ISSUE [None]
